FAERS Safety Report 7382586-0 (Version None)
Quarter: 2011Q1

REPORT INFORMATION
  Report Type: 
  Country: None (occurrence: None)
  Receive Date: 20110329
  Receipt Date: 20110309
  Transmission Date: 20110831
  Serious: Yes (Other)
  Sender: FDA-Public Use
  Company Number: US-BAYER-200938804NA

PATIENT
  Sex: Female
  Weight: 75.283 kg

DRUGS (24)
  1. TRAZODONE [Concomitant]
  2. LISINOPRIL [Concomitant]
     Dosage: 10 MG, QD
     Route: 048
  3. SPIRONOLACTONE [Concomitant]
     Dosage: 25 MG, QD
     Route: 048
     Dates: start: 20070501
  4. LASIX [Concomitant]
     Dosage: UNK
     Route: 048
     Dates: start: 20070501
  5. THIAMINE [Concomitant]
     Dosage: 100 MG, QD
     Dates: start: 20070501
  6. ASPIRIN [Concomitant]
     Dosage: UNK
     Dates: start: 20070501
  7. LANSOPRAZOLE [Concomitant]
     Dosage: 30 MG, QD
     Dates: start: 20070501
  8. MILRINONE [Concomitant]
     Dosage: UNK
     Route: 042
     Dates: start: 20070501
  9. CARVEDILOL [Concomitant]
     Dosage: 12.5 MG, BID
     Route: 048
  10. FOLIC ACID [Concomitant]
     Dosage: 1 MG, QD
     Dates: start: 20070501
  11. PREVACID [Concomitant]
     Dosage: 30 MG, QD
     Route: 048
     Dates: start: 20070501
  12. ZOCOR [Concomitant]
     Dosage: 20 MG, QD
     Route: 048
     Dates: start: 20070501
  13. CEFEPIME [Concomitant]
     Dosage: 1 G, BID
     Route: 042
     Dates: start: 20070501
  14. GENTAMICIN [Concomitant]
     Dosage: 150 MG, UNK
     Route: 042
     Dates: start: 20070501
  15. WELLBUTRIN [Concomitant]
     Dosage: 150 MG, BID
     Route: 048
  16. NIMBEX [Concomitant]
     Dosage: UNK
     Route: 042
     Dates: start: 20070501
  17. VANCOMYCIN [Concomitant]
     Dosage: UNK
     Route: 042
     Dates: start: 20070501
  18. TRASYLOL [Suspect]
     Indication: CORONARY ARTERY BYPASS
     Dosage: 6-100CC VIALS
     Route: 042
     Dates: start: 20070508
  19. METHADONE [Concomitant]
     Dosage: 28 MG, QD
     Route: 048
     Dates: start: 20070501
  20. ZOLPIDEM [Concomitant]
     Dosage: 5 MG, UNK
     Dates: start: 20070501
  21. LASIX [Concomitant]
     Route: 042
  22. PLAVIX [Concomitant]
     Dosage: 75 MG, QD
     Dates: start: 20070501
  23. ZOCOR [Concomitant]
     Dosage: 80 MG, QD
     Dates: start: 20070501
  24. HEPARIN SODIUM [Concomitant]
     Dosage: UNK
     Dates: start: 20070501

REACTIONS (9)
  - RENAL INJURY [None]
  - EMOTIONAL DISTRESS [None]
  - PAIN [None]
  - RENAL FAILURE [None]
  - STRESS [None]
  - ANXIETY [None]
  - UNEVALUABLE EVENT [None]
  - RENAL IMPAIRMENT [None]
  - FEAR [None]
